FAERS Safety Report 19481743 (Version 1)
Quarter: 2021Q3

REPORT INFORMATION
  Report Type: Spontaneous
  Country: SE (occurrence: SE)
  Receive Date: 20210701
  Receipt Date: 20210701
  Transmission Date: 20211014
  Serious: Yes (Hospitalization)
  Sender: FDA-Public Use
  Company Number: SE-TEVA-2021-SE-1927961

PATIENT
  Age: 72 Year
  Sex: Female

DRUGS (1)
  1. PREDNISOLONE. [Suspect]
     Active Substance: PREDNISOLONE
     Indication: POLYMYALGIA RHEUMATICA
     Route: 065

REACTIONS (5)
  - Keratitis [Unknown]
  - Myopathy [Unknown]
  - Cushing^s syndrome [Unknown]
  - Microcytic anaemia [Unknown]
  - Steroid diabetes [Unknown]

NARRATIVE: CASE EVENT DATE: 2021
